FAERS Safety Report 10769013 (Version 1)
Quarter: 2015Q1

REPORT INFORMATION
  Report Type: Spontaneous
  Country: PL (occurrence: None)
  Receive Date: 20150204
  Receipt Date: 20150204
  Transmission Date: 20150721
  Serious: Yes (Hospitalization)
  Sender: FDA-Public Use
  Company Number: PL-ZYDUS-006474

PATIENT
  Age: 34 Year
  Sex: Male

DRUGS (1)
  1. NAPROXEN(NAPROXEN) [Suspect]
     Active Substance: NAPROXEN

REACTIONS (1)
  - Anaphylactic reaction [None]
